FAERS Safety Report 9410039 (Version 1)
Quarter: 2013Q3

REPORT INFORMATION
  Report Type: Report from Study
  Country: US (occurrence: US)
  Receive Date: 20130719
  Receipt Date: 20130719
  Transmission Date: 20140515
  Serious: Yes (Hospitalization)
  Sender: FDA-Public Use
  Company Number: US-ABBOTT-13P-163-1118131-00

PATIENT
  Age: 73 Year
  Sex: Female
  Weight: 54.48 kg

DRUGS (13)
  1. HUMIRA [Suspect]
     Indication: CROHN^S DISEASE
     Dates: start: 20120128, end: 20120128
  2. HUMIRA [Suspect]
     Dates: start: 20120211, end: 20120211
  3. HUMIRA [Suspect]
     Dates: start: 20130225, end: 20130228
  4. HUMIRA [Suspect]
     Dates: start: 20130530
  5. DILTIAZEM [Concomitant]
     Indication: HYPERTENSION
  6. SPIRONOLACTONE [Concomitant]
     Indication: HYPERTENSION
  7. ASPIRIN [Concomitant]
     Indication: PRODUCT USED FOR UNKNOWN INDICATION
  8. VITAMIN D [Concomitant]
     Indication: VITAMIN SUPPLEMENTATION
  9. CALCIUM [Concomitant]
     Indication: MINERAL SUPPLEMENTATION
  10. VITAMIN B12 [Concomitant]
     Indication: VITAMIN SUPPLEMENTATION
  11. IRON [Concomitant]
     Indication: MINERAL SUPPLEMENTATION
  12. POTASSIUM [Concomitant]
     Indication: MINERAL SUPPLEMENTATION
  13. RECALST [Concomitant]
     Indication: OSTEOPOROSIS

REACTIONS (6)
  - Cough [Recovered/Resolved]
  - Lung infection [Recovered/Resolved]
  - Fall [Recovered/Resolved]
  - Hip fracture [Recovering/Resolving]
  - Colonic fistula [Not Recovered/Not Resolved]
  - Anaemia [Recovered/Resolved]
